FAERS Safety Report 13251713 (Version 4)
Quarter: 2020Q4

REPORT INFORMATION
  Report Type: Spontaneous
  Country: US (occurrence: US)
  Receive Date: 20170220
  Receipt Date: 20201106
  Transmission Date: 20210113
  Serious: No
  Sender: FDA-Public Use
  Company Number: US-PFIZER INC-2017068132

PATIENT
  Age: 67 Year
  Sex: Female
  Weight: 63 kg

DRUGS (1)
  1. LYRICA [Suspect]
     Active Substance: PREGABALIN
     Indication: NEUROPATHY PERIPHERAL
     Dosage: 350 MG, DAILY (200MG CAPSULE IN THE MORNING + 150MG CAPSULE AT NIGHT)
     Route: 048

REACTIONS (2)
  - Pain [Unknown]
  - Withdrawal syndrome [Unknown]
